APPROVED DRUG PRODUCT: TRIDIONE
Active Ingredient: TRIMETHADIONE
Strength: 200MG/5ML
Dosage Form/Route: SOLUTION;ORAL
Application: N005856 | Product #002
Applicant: ABBVIE INC
Approved: Approved Prior to Jan 1, 1982 | RLD: No | RS: No | Type: DISCN